FAERS Safety Report 14299069 (Version 3)
Quarter: 2018Q1

REPORT INFORMATION
  Report Type: Report from Study
  Country: US (occurrence: US)
  Receive Date: 20171218
  Receipt Date: 20180220
  Transmission Date: 20180509
  Serious: Yes (Hospitalization, Other)
  Sender: FDA-Public Use
  Company Number: US-TESARO, INC-US-2017TSO04107

PATIENT

DRUGS (2)
  1. ZEJULA [Suspect]
     Active Substance: NIRAPARIB
     Dosage: 100 MG, QD
     Route: 048
     Dates: start: 201801
  2. ZEJULA [Suspect]
     Active Substance: NIRAPARIB
     Indication: OVARIAN CANCER
     Dosage: 300 MG, QD
     Route: 048
     Dates: start: 20171113, end: 20171122

REACTIONS (19)
  - Fatigue [Not Recovered/Not Resolved]
  - Blood potassium decreased [Not Recovered/Not Resolved]
  - Weight decreased [Not Recovered/Not Resolved]
  - Influenza [Recovering/Resolving]
  - Gastritis [Not Recovered/Not Resolved]
  - Adverse drug reaction [Recovering/Resolving]
  - Abdominal pain [Not Recovered/Not Resolved]
  - Asthenia [Recovering/Resolving]
  - Dehydration [Recovering/Resolving]
  - Malaise [Not Recovered/Not Resolved]
  - Drug intolerance [Not Recovered/Not Resolved]
  - Mastication disorder [Not Recovered/Not Resolved]
  - Feeding disorder [Not Recovered/Not Resolved]
  - Retching [Not Recovered/Not Resolved]
  - Nausea [Not Recovered/Not Resolved]
  - Pneumonia [Recovering/Resolving]
  - Headache [Not Recovered/Not Resolved]
  - Drug dose omission [Recovered/Resolved]
  - Blood electrolytes decreased [Not Recovered/Not Resolved]
